FAERS Safety Report 16787562 (Version 1)
Quarter: 2019Q3

REPORT INFORMATION
  Report Type: Spontaneous
  Country: DE (occurrence: DE)
  Receive Date: 20190909
  Receipt Date: 20190909
  Transmission Date: 20191005
  Serious: Yes (Hospitalization)
  Sender: FDA-Public Use
  Company Number: PHHY2019DE209468

PATIENT
  Age: 67 Year
  Sex: Male

DRUGS (1)
  1. CARVEDILOL 1A PHARMA [Suspect]
     Active Substance: CARVEDILOL
     Indication: HYPERTENSION
     Dosage: 12.5 MG, UNK
     Route: 065

REACTIONS (4)
  - Musculoskeletal stiffness [Unknown]
  - Confusional state [Unknown]
  - Alopecia [Unknown]
  - Dry mouth [Unknown]
